FAERS Safety Report 24797824 (Version 1)
Quarter: 2025Q1

REPORT INFORMATION
  Report Type: Report from Study
  Country: US (occurrence: US)
  Receive Date: 20250102
  Receipt Date: 20250102
  Transmission Date: 20250408
  Serious: Yes (Hospitalization, Other)
  Sender: JOHNSON AND JOHNSON
  Company Number: US-JNJFOC-20241275777

PATIENT
  Age: 72 Year
  Sex: Female

DRUGS (3)
  1. SPRAVATO [Suspect]
     Active Substance: ESKETAMINE
     Indication: Depression
     Route: 045
     Dates: start: 20240622, end: 20240703
  2. CLINDAMYCIN [Interacting]
     Active Substance: CLINDAMYCIN
     Indication: Respiratory syncytial virus infection
  3. DOXYCYCLINE [Interacting]
     Active Substance: DOXYCYCLINE
     Indication: Arthropod bite

REACTIONS (8)
  - Hallucination [Unknown]
  - Hospitalisation [Unknown]
  - Respiratory syncytial virus infection [Unknown]
  - COVID-19 [Unknown]
  - Arthropod bite [Unknown]
  - Drug interaction [Unknown]
  - Dyspnoea [Unknown]
  - Helminthic infection [Unknown]

NARRATIVE: CASE EVENT DATE: 20240101
